FAERS Safety Report 10049149 (Version 8)
Quarter: 2014Q3

REPORT INFORMATION
  Report Type: Spontaneous
  Country: US (occurrence: US)
  Receive Date: 20140401
  Receipt Date: 20140904
  Transmission Date: 20150326
  Serious: Yes (Hospitalization, Other)
  Sender: FDA-Public Use
  Company Number: US-JNJFOC-20140312388

PATIENT
  Sex: Male
  Weight: 110 kg

DRUGS (5)
  1. TYLENOL EXTRA STRENGTH [Suspect]
     Active Substance: ACETAMINOPHEN
     Indication: PRODUCT USED FOR UNKNOWN INDICATION
     Route: 048
     Dates: start: 20100519, end: 20100608
  2. TYLENOL PM [Suspect]
     Active Substance: ACETAMINOPHEN\DIPHENHYDRAMINE
     Indication: INSOMNIA
     Dosage: 10 TO 15 TABLETS A DAY EQUIVALENT TO 5 G TO 7.5 G PER DAY
     Route: 048
     Dates: start: 20100514, end: 20100519
  3. TYLENOL [Suspect]
     Active Substance: ACETAMINOPHEN
     Indication: TOOTHACHE
     Dosage: ^SOMETIMES 2 MORE DURING THE NIGHT IF PAIN PERSISTED^
     Route: 048
     Dates: start: 20100514, end: 20100519
  4. LORCET [Concomitant]
     Active Substance: ACETAMINOPHEN\HYDROCODONE BITARTRATE
     Indication: PAIN
     Route: 065
  5. IBUPROFEN. [Concomitant]
     Active Substance: IBUPROFEN
     Indication: TOOTHACHE
     Route: 065

REACTIONS (6)
  - Respiratory failure [Recovered/Resolved]
  - Acute hepatic failure [Unknown]
  - Overdose [Unknown]
  - Hepatic encephalopathy [Recovering/Resolving]
  - Transaminases increased [Recovering/Resolving]
  - Thrombocytopenia [Recovered/Resolved]
